FAERS Safety Report 8617459-6 (Version None)
Quarter: 2012Q3

REPORT INFORMATION
  Report Type: 
  Country: None (occurrence: None)
  Receive Date: 20120824
  Receipt Date: 20111108
  Transmission Date: 20120928
  Serious: No
  Sender: FDA-Public Use
  Company Number: US-ASTRAZENECA-2011SE64488

PATIENT
  Age: 73 Year
  Sex: Female

DRUGS (2)
  1. ANTIBIOTICS [Concomitant]
  2. SYMBICORT [Suspect]
     Route: 055

REACTIONS (4)
  - CHRONIC OBSTRUCTIVE PULMONARY DISEASE [None]
  - GAIT DISTURBANCE [None]
  - POOR PERIPHERAL CIRCULATION [None]
  - LOCALISED INFECTION [None]
